FAERS Safety Report 8985604 (Version 1)
Quarter: 2012Q4

REPORT INFORMATION
  Report Type: 
  Country: JP (occurrence: JP)
  Receive Date: 20121226
  Receipt Date: 20121226
  Transmission Date: 20130627
  Serious: Yes (Hospitalization)
  Sender: FDA-Public Use
  Company Number: JP-PFIZER INC-2012312112

PATIENT

DRUGS (5)
  1. SALAZOPYRIN [Suspect]
     Dosage: 2000 mg daily
     Route: 048
     Dates: start: 2010, end: 20121207
  2. TAKEPRON [Concomitant]
     Dosage: 15 mg daily
     Route: 048
  3. BAYASPIRIN [Concomitant]
     Dosage: 100 mg daily
     Route: 048
  4. BLADDERON [Concomitant]
     Dosage: 600 mg daily
     Route: 048
  5. PERIACTINE [Concomitant]
     Dosage: 8 mg daily
     Route: 048

REACTIONS (4)
  - Anaemia [Unknown]
  - Platelet count decreased [Unknown]
  - Vomiting [Unknown]
  - Nausea [Unknown]
